FAERS Safety Report 9454324 (Version 3)
Quarter: 2013Q3

REPORT INFORMATION
  Report Type: Spontaneous
  Country: MX (occurrence: MX)
  Receive Date: 20130812
  Receipt Date: 20130828
  Transmission Date: 20140515
  Serious: Yes (Death, Hospitalization)
  Sender: FDA-Public Use
  Company Number: PHHY2013MX084533

PATIENT
  Age: 55 Year
  Sex: Female

DRUGS (1)
  1. SANDOSTATIN LAR [Suspect]
     Indication: NEUROENDOCRINE TUMOUR
     Dosage: 20 MG, EVERY 28 DAYS
     Route: 030
     Dates: start: 2012

REACTIONS (3)
  - Renal failure chronic [Fatal]
  - Diarrhoea [Fatal]
  - Electrolyte imbalance [Fatal]
